FAERS Safety Report 5968570-X (Version None)
Quarter: 2008Q4

REPORT INFORMATION
  Report Type: 
  Country: None (occurrence: None)
  Receive Date: 20081121
  Receipt Date: 20081121
  Transmission Date: 20090506
  Serious: Yes (Other)
  Sender: FDA-Public Use
  Company Number: None

PATIENT
  Age: 30 Year
  Sex: Female

DRUGS (1)
  1. PHENYTOIN [Suspect]

REACTIONS (12)
  - ANAPHYLACTIC REACTION [None]
  - APHASIA [None]
  - BLOOD ALBUMIN DECREASED [None]
  - CHEST PAIN [None]
  - FEELING ABNORMAL [None]
  - HEART RATE IRREGULAR [None]
  - HYPOTENSION [None]
  - NAUSEA [None]
  - PRURITUS GENERALISED [None]
  - RASH [None]
  - RASH ERYTHEMATOUS [None]
  - VOMITING [None]
